FAERS Safety Report 7109568-8 (Version None)
Quarter: 2010Q4

REPORT INFORMATION
  Report Type: 
  Country: None (occurrence: None)
  Receive Date: 20101118
  Receipt Date: 20101110
  Transmission Date: 20110411
  Serious: No
  Sender: FDA-Public Use
  Company Number: US-BIOGENIDEC-2010BI039412

PATIENT
  Sex: Female

DRUGS (3)
  1. AVONEX [Suspect]
     Indication: MULTIPLE SCLEROSIS
     Route: 030
     Dates: start: 20050101
  2. AVONEX [Suspect]
     Route: 030
     Dates: end: 20080609
  3. AVONEX [Suspect]
     Route: 030

REACTIONS (8)
  - ARTHRALGIA [None]
  - ARTHROPATHY [None]
  - BALANCE DISORDER [None]
  - BURNING SENSATION [None]
  - BURSITIS [None]
  - DEPRESSION [None]
  - FALL [None]
  - MEMORY IMPAIRMENT [None]
